FAERS Safety Report 7455787-0 (Version None)
Quarter: 2011Q2

REPORT INFORMATION
  Report Type: 
  Country: None (occurrence: None)
  Receive Date: 20110503
  Receipt Date: 20110420
  Transmission Date: 20111010
  Serious: Yes (Hospitalization, Other)
  Sender: FDA-Public Use
  Company Number: PHHY2011US11696

PATIENT
  Sex: Female
  Weight: 84 kg

DRUGS (8)
  1. AFINITOR [Suspect]
     Dosage: 10 MG, QD
     Route: 048
     Dates: start: 20100620, end: 20110320
  2. IMODIUM MULTI-SYMPTOM RELIEF [Concomitant]
     Route: 048
  3. LACTOBACILLUS [Concomitant]
  4. AFINITOR [Suspect]
     Dosage: 10 MG, DAILY
     Route: 048
     Dates: start: 20100514
  5. POTASSIUM CHLORIDE [Concomitant]
  6. OXYCODONE [Concomitant]
     Route: 048
  7. AFINITOR [Suspect]
     Indication: RENAL CANCER
     Dosage: 10 MG, QD
     Route: 048
     Dates: start: 20100510
  8. LOMOTIL [Concomitant]
     Route: 048

REACTIONS (7)
  - DIARRHOEA [None]
  - HERNIA [None]
  - ELECTROLYTE IMBALANCE [None]
  - METASTASES TO LIVER [None]
  - HYPOKALAEMIA [None]
  - NEOPLASM MALIGNANT [None]
  - METASTASES TO BONE [None]
